FAERS Safety Report 8188368-4 (Version None)
Quarter: 2012Q1

REPORT INFORMATION
  Report Type: 
  Country: None (occurrence: None)
  Receive Date: 20120306
  Receipt Date: 20120229
  Transmission Date: 20120608
  Serious: Yes (Hospitalization, Other)
  Sender: FDA-Public Use
  Company Number: US-GENZYME-FABR-1002377

PATIENT
  Sex: Male
  Weight: 35 kg

DRUGS (2)
  1. FABRAZYME [Suspect]
     Indication: FABRY'S DISEASE
     Dosage: 85 MG, Q4W
     Route: 042
  2. FABRAZYME [Suspect]
     Dosage: UNK
     Dates: start: 20030801

REACTIONS (2)
  - RENAL FAILURE [None]
  - HOSPITALISATION [None]
